FAERS Safety Report 7886365-7 (Version None)
Quarter: 2011Q4

REPORT INFORMATION
  Report Type: 
  Country: None (occurrence: None)
  Receive Date: 20111102
  Receipt Date: 20110701
  Transmission Date: 20120403
  Serious: No
  Sender: FDA-Public Use
  Company Number: US-AMGEN-USASP2011033741

PATIENT
  Age: 52 Year
  Sex: Female
  Weight: 87.075 kg

DRUGS (7)
  1. FOLIC ACID [Concomitant]
     Dosage: 1 MG, UNK
  2. IBUPROFEN [Concomitant]
     Dosage: 200 MG, UNK
  3. CALCIUM D                          /00944201/ [Concomitant]
  4. FLAXSEED OIL [Concomitant]
  5. BENADRYL [Concomitant]
     Dosage: 25 MG, UNK
  6. ENBREL [Suspect]
     Indication: PRODUCT USED FOR UNKNOWN INDICATION
     Dosage: 50 MG, QWK
     Route: 058
  7. VITAMIN C                          /00008001/ [Concomitant]
     Dosage: 1000 MG, UNK

REACTIONS (3)
  - INJECTION SITE ERYTHEMA [None]
  - INJECTION SITE PAIN [None]
  - INJECTION SITE INDURATION [None]
